FAERS Safety Report 22245850 (Version 3)
Quarter: 2023Q2

REPORT INFORMATION
  Report Type: Spontaneous
  Country: GB (occurrence: GB)
  Receive Date: 20230424
  Receipt Date: 20230519
  Transmission Date: 20230721
  Serious: Yes (Life-Threatening, Hospitalization, Disabling, Other)
  Sender: FDA-Public Use
  Company Number: None

PATIENT
  Age: 15 Year
  Sex: Male

DRUGS (15)
  1. LACOSAMIDE [Suspect]
     Active Substance: LACOSAMIDE
     Indication: Seizure
     Dosage: 300 MILLIGRAM PER DAY
     Dates: start: 20180208, end: 20180811
  2. KEPPRA [Suspect]
     Active Substance: LEVETIRACETAM
     Indication: Seizure
     Dosage: 2000 MILLIGRAM PER DAY
     Dates: start: 20160429, end: 20170423
  3. KEPPRA [Suspect]
     Active Substance: LEVETIRACETAM
     Dosage: MAXIMUM DOSE 2000MG PER DAY; ;
     Dates: start: 20180616, end: 20190101
  4. KEPPRA [Suspect]
     Active Substance: LEVETIRACETAM
     Dosage: 1000 MILLIGRAM, ONCE DAILY (QD)
     Dates: start: 20160429, end: 20170423
  5. CARBAMAZEPINE [Suspect]
     Active Substance: CARBAMAZEPINE
     Indication: Seizure
     Dosage: 200 MILLIGRAM PER DAY
     Dates: start: 20160312, end: 20160429
  6. CLOBAZAM [Suspect]
     Active Substance: CLOBAZAM
     Indication: Seizure
     Dosage: MAXIMUM DOSE 20MG PER DAY;
     Dates: start: 20180609, end: 20190416
  7. LAMOTRIGINE [Suspect]
     Active Substance: LAMOTRIGINE
     Indication: Seizure
     Dosage: MAXIMUM DOSE 250MG PER DAY
     Dates: start: 20161012, end: 20180606
  8. LAMOTRIGINE [Suspect]
     Active Substance: LAMOTRIGINE
     Indication: Adverse drug reaction
  9. PHENYTOIN [Suspect]
     Active Substance: PHENYTOIN
     Indication: Partial seizures
     Dosage: 250 MILLIGRAM PER DAY
     Dates: start: 20180612, end: 20200625
  10. VALPROATE SODIUM [Suspect]
     Active Substance: VALPROATE SODIUM
     Indication: Seizure
     Dosage: 200 MILLIGRAM, PER DAY
     Dates: start: 20160312, end: 20160429
  11. VALPROATE SODIUM [Suspect]
     Active Substance: VALPROATE SODIUM
     Indication: Adverse drug reaction
     Dosage: MAX DOSE 1200MG PER DAY
     Dates: start: 20160429, end: 20160911
  12. VALPROATE SODIUM [Suspect]
     Active Substance: VALPROATE SODIUM
     Dosage: 1000 MILLIGRAM
     Dates: end: 20170423
  13. VALPROATE SODIUM [Suspect]
     Active Substance: VALPROATE SODIUM
     Dosage: UNK, ONCE DAILY (QD)
     Dates: start: 20180609, end: 20190416
  14. VALPROATE SODIUM [Suspect]
     Active Substance: VALPROATE SODIUM
     Dosage: 250 MILLIGRAM, PER DAY
     Dates: start: 20180612, end: 20200625
  15. VALPROATE SODIUM [Suspect]
     Active Substance: VALPROATE SODIUM
     Dosage: MAXIMUM DOSE 2000MG PER DAY
     Dates: start: 20180616, end: 20190101

REACTIONS (6)
  - Seizure [Recovered/Resolved]
  - Seizure cluster [Recovered/Resolved]
  - Memory impairment [Recovered/Resolved]
  - Fatigue [Recovered/Resolved]
  - Medication error [Unknown]
  - Multiple-drug resistance [Unknown]

NARRATIVE: CASE EVENT DATE: 20180101
